FAERS Safety Report 7342721-7 (Version None)
Quarter: 2011Q1

REPORT INFORMATION
  Report Type: 
  Country: None (occurrence: None)
  Receive Date: 20110301
  Receipt Date: 20110217
  Transmission Date: 20110831
  Serious: Yes (Hospitalization, Other)
  Sender: FDA-Public Use
  Company Number: 2011MA001566

PATIENT
  Age: 62 Year
  Sex: Male

DRUGS (6)
  1. OMEPRAZOLE [Concomitant]
  2. CLADRIBINE [Concomitant]
  3. ACYCLOVIR [Concomitant]
  4. AMOXICILLIN [Concomitant]
  5. POSACONAZOLE [Concomitant]
  6. SULFATRIM PEDIATRIC [Suspect]
     Indication: PROPHYLAXIS
     Dosage: TIW; PO
     Route: 048
     Dates: start: 20100920, end: 20101220

REACTIONS (2)
  - TOXIC SKIN ERUPTION [None]
  - ERYTHRODERMIC PSORIASIS [None]
